FAERS Safety Report 5723859-4 (Version None)
Quarter: 2008Q2

REPORT INFORMATION
  Report Type: 
  Country: None (occurrence: None)
  Receive Date: 20080428
  Receipt Date: 20080415
  Transmission Date: 20081010
  Serious: Yes (Hospitalization)
  Sender: FDA-Public Use
  Company Number: 2008BI001516

PATIENT
  Age: 69 Year
  Sex: Female
  Weight: 81.6475 kg

DRUGS (1)
  1. AVONEX [Suspect]
     Indication: MULTIPLE SCLEROSIS
     Dosage: 30 UG; QW; IM
     Route: 030
     Dates: start: 20071206, end: 20080301

REACTIONS (6)
  - BLOOD MAGNESIUM DECREASED [None]
  - CONDITION AGGRAVATED [None]
  - CONTUSION [None]
  - FALL [None]
  - MULTIPLE SCLEROSIS [None]
  - PARAPARESIS [None]
